FAERS Safety Report 6372111-5 (Version None)
Quarter: 2009Q3

REPORT INFORMATION
  Report Type: 
  Country: None (occurrence: None)
  Receive Date: 20090917
  Receipt Date: 20090908
  Transmission Date: 20100115
  Serious: Yes (Hospitalization)
  Sender: FDA-Public Use
  Company Number: 2009EU003521

PATIENT
  Sex: Male
  Weight: 71 kg

DRUGS (3)
  1. PROGRAF [Suspect]
     Indication: RENAL TRANSPLANT
     Dosage: 7 MG, BID, ORAL; 1 MG, BID, ORAL
     Route: 048
     Dates: start: 20090801
  2. CELLCEPT [Concomitant]
  3. CORTICOSTEROIDS [Concomitant]

REACTIONS (2)
  - ANURIA [None]
  - DRUG LEVEL INCREASED [None]
